FAERS Safety Report 17547319 (Version 1)
Quarter: 2020Q1

REPORT INFORMATION
  Report Type: Spontaneous
  Country: SE (occurrence: SE)
  Receive Date: 20200316
  Receipt Date: 20200316
  Transmission Date: 20200409
  Serious: Yes (Other)
  Sender: FDA-Public Use
  Company Number: SE-MYLANLABS-2020M1026949

PATIENT
  Age: 38 Year
  Sex: Male
  Weight: 100 kg

DRUGS (1)
  1. NAPROXEN MYLAN [Suspect]
     Active Substance: NAPROXEN
     Indication: ARTHRITIS
     Dosage: 1 TABLETT 2 GGR DAGLIGEN I 10 DAGAR VNR 039801
     Dates: start: 20200127, end: 20200203

REACTIONS (4)
  - Visual impairment [Recovered/Resolved]
  - Skin ulcer [Recovering/Resolving]
  - Lymphadenopathy [Recovering/Resolving]
  - Gastrooesophageal reflux disease [Recovering/Resolving]

NARRATIVE: CASE EVENT DATE: 20200130
